FAERS Safety Report 8495310-5 (Version None)
Quarter: 2012Q3

REPORT INFORMATION
  Report Type: 
  Country: None (occurrence: None)
  Receive Date: 20120709
  Receipt Date: 20120702
  Transmission Date: 20120928
  Serious: Yes (Other)
  Sender: FDA-Public Use
  Company Number: FR-PFIZER INC-2012157550

PATIENT
  Age: 44 Year
  Sex: Male

DRUGS (5)
  1. LYRICA [Suspect]
     Dosage: 18 DF DAILY
     Route: 048
     Dates: start: 20120101
  2. XANAX [Suspect]
     Dosage: 12 DF DAILY
     Route: 048
     Dates: start: 20120101
  3. TETRAZEPAM [Suspect]
     Dosage: 18 DF DAILY
     Route: 048
     Dates: start: 20120101
  4. ZOLPIDEM [Suspect]
     Dosage: 30 DF DAILY
     Route: 048
     Dates: start: 20120101
  5. ACETAMINOPHEN W/ CODEINE [Suspect]
     Dosage: 24 DF DAILY
     Route: 048
     Dates: start: 20120101

REACTIONS (6)
  - SOMNOLENCE [None]
  - TOOTH LOSS [None]
  - DEAFNESS BILATERAL [None]
  - DEPENDENCE [None]
  - EMOTIONAL DISTRESS [None]
  - ALOPECIA [None]
